FAERS Safety Report 17970682 (Version 1)
Quarter: 2020Q3

REPORT INFORMATION
  Report Type: Spontaneous
  Country: US (occurrence: US)
  Receive Date: 20200702
  Receipt Date: 20200702
  Transmission Date: 20201103
  Serious: Yes (Other)
  Sender: FDA-Public Use
  Company Number: US-STRIDES ARCOLAB LIMITED-2020SP006961

PATIENT
  Age: 45 Year
  Sex: Male

DRUGS (2)
  1. AMANTADINE HYDROCHLORIDE. [Suspect]
     Active Substance: AMANTADINE HYDROCHLORIDE
     Indication: COGNITIVE DISORDER
  2. AMANTADINE HYDROCHLORIDE. [Suspect]
     Active Substance: AMANTADINE HYDROCHLORIDE
     Indication: DISTURBANCE IN ATTENTION
     Dosage: 100 MILLIGRAM, BID
     Route: 065

REACTIONS (4)
  - Substance-induced psychotic disorder [Recovered/Resolved]
  - Delusion of replacement [Recovered/Resolved]
  - Agitation [Recovered/Resolved]
  - Paranoia [Recovered/Resolved]
